FAERS Safety Report 10085693 (Version 4)
Quarter: 2020Q1

REPORT INFORMATION
  Report Type: Report from Study
  Country: SK (occurrence: SK)
  Receive Date: 20140418
  Receipt Date: 20200228
  Transmission Date: 20200409
  Serious: Yes (Hospitalization)
  Sender: FDA-Public Use
  Company Number: SK-JNJFOC-20140405612

PATIENT
  Age: 44 Year
  Sex: Male
  Weight: 92 kg

DRUGS (2)
  1. STELARA [Suspect]
     Active Substance: USTEKINUMAB
     Route: 058
     Dates: start: 20120312, end: 20190308
  2. STELARA [Suspect]
     Active Substance: USTEKINUMAB
     Indication: PSORIASIS
     Route: 058
     Dates: start: 20120312, end: 20190308

REACTIONS (8)
  - Intervertebral disc protrusion [Unknown]
  - Osteochondrosis [Unknown]
  - Nasopharyngitis [Unknown]
  - Vasculitic rash [Unknown]
  - Spinal osteoarthritis [Unknown]
  - Radiculopathy [Recovered/Resolved with Sequelae]
  - Intervertebral disc disorder [Unknown]
  - Spinal laminectomy [Unknown]

NARRATIVE: CASE EVENT DATE: 20130917
